FAERS Safety Report 5430782-1 (Version None)
Quarter: 2007Q3

REPORT INFORMATION
  Report Type: 
  Country: None (occurrence: None)
  Receive Date: 20070830
  Receipt Date: 20070123
  Transmission Date: 20080115
  Serious: Yes (Hospitalization)
  Sender: FDA-Public Use
  Company Number: A0628120A

PATIENT
  Age: 7 Year
  Sex: Male
  Weight: 21.8 kg

DRUGS (1)
  1. WELLBUTRIN XL [Suspect]
     Dosage: 150MG SEE DOSAGE TEXT
     Route: 048

REACTIONS (5)
  - ACCIDENTAL EXPOSURE [None]
  - ACCIDENTAL OVERDOSE [None]
  - CONVULSION [None]
  - POSTICTAL STATE [None]
  - VOMITING [None]
